FAERS Safety Report 10359416 (Version 2)
Quarter: 2014Q3

REPORT INFORMATION
  Report Type: Spontaneous
  Country: US (occurrence: US)
  Receive Date: 20140804
  Receipt Date: 20140804
  Transmission Date: 20150326
  Serious: No
  Sender: FDA-Public Use
  Company Number: US-BEH-2010026799

PATIENT
  Age: 40 Year
  Sex: Female

DRUGS (23)
  1. CARIMUNE NF [Suspect]
     Active Substance: HUMAN IMMUNOGLOBULIN G
     Dates: start: 20100417, end: 20100417
  2. CARIMUNE NF [Suspect]
     Active Substance: HUMAN IMMUNOGLOBULIN G
     Dates: start: 20100625, end: 20100625
  3. LEVAQUIN [Concomitant]
     Active Substance: LEVOFLOXACIN
     Indication: CYSTITIS
  4. CARIMUNE NF [Suspect]
     Active Substance: HUMAN IMMUNOGLOBULIN G
     Dates: start: 20100305, end: 20100305
  5. CARIMUNE NF [Suspect]
     Active Substance: HUMAN IMMUNOGLOBULIN G
     Dates: start: 20100507, end: 20100507
  6. CARIMUNE NF [Suspect]
     Active Substance: HUMAN IMMUNOGLOBULIN G
     Dates: start: 20100828, end: 20100828
  7. LEVAQUIN [Concomitant]
     Active Substance: LEVOFLOXACIN
     Indication: CYSTITIS
  8. CARIMUNE NF [Suspect]
     Active Substance: HUMAN IMMUNOGLOBULIN G
     Indication: IMMUNODEFICIENCY COMMON VARIABLE
     Dosage: THIS INFUSION WAS SPREAD ACROSS TWO DAYS: 12G ON 10-FEB AND 12G ON 11-FEB
     Route: 042
     Dates: start: 20100210, end: 20100211
  9. CARIMUNE NF [Suspect]
     Active Substance: HUMAN IMMUNOGLOBULIN G
     Dates: start: 20100528, end: 20100528
  10. CARIMUNE NF [Suspect]
     Active Substance: HUMAN IMMUNOGLOBULIN G
     Dates: start: 20100917, end: 20100917
  11. HYDROCORTISONE. [Concomitant]
     Active Substance: HYDROCORTISONE
     Dosage: 100MG TO TREAT ADR BUT ALSO USED AS PREMEDICATION; DOSE LATER DROPPPED TO 50MG AS PRE-MEDICATION
     Dates: start: 20100210
  12. MULTIVITAMIN [Concomitant]
     Active Substance: VITAMINS
  13. ZOFRAN [Concomitant]
     Active Substance: ONDANSETRON HYDROCHLORIDE
     Indication: NAUSEA
  14. CARIMUNE NF [Suspect]
     Active Substance: HUMAN IMMUNOGLOBULIN G
     Dates: start: 20100717, end: 20100717
  15. OTHER ANTI-ASTHMATICS FOR SYSTEMIC USE [Concomitant]
  16. FIORICET [Concomitant]
     Active Substance: ACETAMINOPHEN\BUTALBITAL\CAFFEINE
     Indication: MIGRAINE
  17. ACIDOPHILUS [Concomitant]
     Active Substance: LACTOBACILLUS ACIDOPHILUS
  18. SOY PROBIOTIC [Concomitant]
  19. CARIMUNE NF [Suspect]
     Active Substance: HUMAN IMMUNOGLOBULIN G
     Dates: start: 20100326, end: 20100326
  20. ANTIBIOTICS [Concomitant]
     Active Substance: UNSPECIFIED INGREDIENT
  21. PREDNISONE. [Concomitant]
     Active Substance: PREDNISONE
  22. CLONAZEPAM. [Concomitant]
     Active Substance: CLONAZEPAM
     Indication: CONVULSION
  23. CARIMUNE NF [Suspect]
     Active Substance: HUMAN IMMUNOGLOBULIN G
     Dates: start: 20100806, end: 20100806

REACTIONS (29)
  - Feeling abnormal [Recovering/Resolving]
  - Urticaria [Recovered/Resolved]
  - Chills [Unknown]
  - Emotional distress [Recovering/Resolving]
  - Eczema [Recovered/Resolved]
  - Headache [Recovered/Resolved]
  - Asthenia [Recovered/Resolved]
  - Fatigue [Recovering/Resolving]
  - Presyncope [Recovered/Resolved]
  - Migraine [Unknown]
  - Rash papular [Recovered/Resolved]
  - Dyspnoea [Recovered/Resolved]
  - Infusion site reaction [Unknown]
  - Tremor [Recovered/Resolved]
  - Fatigue [Recovered/Resolved]
  - Fatigue [Recovering/Resolving]
  - Disturbance in attention [Unknown]
  - Asthenia [Unknown]
  - Pyrexia [Unknown]
  - Pain [Recovered/Resolved]
  - Migraine [Recovered/Resolved]
  - Headache [Recovered/Resolved]
  - Malaise [Recovered/Resolved]
  - Renal pain [Unknown]
  - Pain [Recovered/Resolved]
  - Back pain [Recovered/Resolved]
  - Dyspnoea [Recovered/Resolved]
  - Asthenia [Recovering/Resolving]
  - Fatigue [Unknown]

NARRATIVE: CASE EVENT DATE: 20100210
